FAERS Safety Report 15496604 (Version 1)
Quarter: 2018Q4

REPORT INFORMATION
  Report Type: Spontaneous
  Country: GB (occurrence: GB)
  Receive Date: 20181013
  Receipt Date: 20181013
  Transmission Date: 20190205
  Serious: Yes (Hospitalization)
  Sender: FDA-Public Use
  Company Number: GB-TEVA-2018-GB-963987

PATIENT
  Age: 99 Year
  Sex: Female

DRUGS (11)
  1. FOLIC ACID. [Concomitant]
     Active Substance: FOLIC ACID
  2. SPIRONOLACTONE. [Concomitant]
     Active Substance: SPIRONOLACTONE
     Dosage: 12.5 MILLIGRAM DAILY; IN THE MORNING.
  3. DEXAMETHASONE. [Concomitant]
     Active Substance: DEXAMETHASONE
     Route: 065
  4. BUMETANIDE. [Concomitant]
     Active Substance: BUMETANIDE
  5. LANSOPRAZOLE. [Concomitant]
     Active Substance: LANSOPRAZOLE
  6. BISOPROLOL [Concomitant]
     Active Substance: BISOPROLOL
  7. BRINZOLAMIDE [Concomitant]
     Active Substance: BRINZOLAMIDE
     Route: 065
  8. ATROPINE. [Concomitant]
     Active Substance: ATROPINE
     Route: 065
  9. BISOPROLOL [Suspect]
     Active Substance: BISOPROLOL
     Indication: BRADYCARDIA
     Dosage: 1.25 MILLIGRAM DAILY; IN THE MORNING.
     Dates: end: 20180910
  10. TIMOLOL AND BIMATOPROST [Concomitant]
     Dosage: BIMATOPROST 300MICROGRAMS/ML / TIMOLOL 5MG/ML.
     Route: 065
  11. APIXABAN [Concomitant]
     Active Substance: APIXABAN

REACTIONS (3)
  - Hypotension [Recovered/Resolved]
  - Bradycardia [Recovered/Resolved]
  - Unresponsive to stimuli [Recovered/Resolved]

NARRATIVE: CASE EVENT DATE: 20180910
